FAERS Safety Report 7311353-9 (Version None)
Quarter: 2011Q1

REPORT INFORMATION
  Report Type: 
  Country: None (occurrence: None)
  Receive Date: 20110224
  Receipt Date: 20110214
  Transmission Date: 20110831
  Serious: Yes (Other)
  Sender: FDA-Public Use
  Company Number: US-JNJFOC-20110108049

PATIENT
  Sex: Female

DRUGS (3)
  1. STELARA [Suspect]
     Indication: PSORIASIS
     Route: 058
  2. BUSPAR [Concomitant]
     Route: 048
  3. AMITRIPTYLINE [Concomitant]
     Route: 048

REACTIONS (1)
  - EPSTEIN-BARR VIRUS INFECTION [None]
